FAERS Safety Report 5876248-6 (Version None)
Quarter: 2008Q3

REPORT INFORMATION
  Report Type: 
  Country: None (occurrence: None)
  Receive Date: 20080910
  Receipt Date: 20060615
  Transmission Date: 20090109
  Serious: No
  Sender: FDA-Public Use
  Company Number: US-BAYER-200831182NA

PATIENT
  Age: 23 Year
  Sex: Female

DRUGS (1)
  1. AVELOX [Suspect]
     Indication: SINUS DISORDER
     Route: 065

REACTIONS (1)
  - DYSGEUSIA [None]
